FAERS Safety Report 5478626-6 (Version None)
Quarter: 2007Q4

REPORT INFORMATION
  Report Type: 
  Country: None (occurrence: None)
  Receive Date: 20071005
  Receipt Date: 20070925
  Transmission Date: 20080405
  Serious: Yes (Life-Threatening, Hospitalization)
  Sender: FDA-Public Use
  Company Number: DE-ELI_LILLY_AND_COMPANY-DE200709006005

PATIENT
  Sex: Female

DRUGS (6)
  1. CYMBALTA [Suspect]
     Indication: DEPRESSION
     Dosage: 90 MG, UNKNOWN
     Route: 048
     Dates: start: 20070920
  2. CYMBALTA [Suspect]
     Dosage: UNK, UNKNOWN
     Route: 065
  3. ATOSIL [Concomitant]
     Dosage: 25 MG, EACH MORNING
     Route: 048
  4. ATOSIL [Concomitant]
     Dosage: 50 MG, EACH EVENING
     Route: 048
  5. METOPROLOL TARTRATE [Concomitant]
     Dosage: 47.3 MG, 2/D
     Route: 048
  6. SIMVASTATIN [Concomitant]
     Dosage: 60 MG, UNKNOWN
     Route: 048

REACTIONS (3)
  - HEART RATE DECREASED [None]
  - ORTHOSTATIC HYPOTENSION [None]
  - SYNCOPE [None]
